FAERS Safety Report 5674679-0 (Version None)
Quarter: 2008Q1

REPORT INFORMATION
  Report Type: 
  Country: None (occurrence: None)
  Receive Date: 20080320
  Receipt Date: 20080317
  Transmission Date: 20080703
  Serious: Yes (Hospitalization)
  Sender: FDA-Public Use
  Company Number: B0507501A

PATIENT
  Age: 74 Year
  Sex: Female
  Weight: 44 kg

DRUGS (8)
  1. VALTREX [Suspect]
     Indication: HERPES ZOSTER
     Dosage: 1000MG THREE TIMES PER DAY
     Route: 048
     Dates: start: 20080205, end: 20080206
  2. ZANTAC [Concomitant]
     Dosage: 300MG PER DAY
     Route: 048
     Dates: end: 20080206
  3. NORVASC [Concomitant]
     Indication: HYPERTENSION
     Dosage: 2.5MG PER DAY
     Route: 048
     Dates: end: 20080206
  4. TRYPTANOL [Concomitant]
     Indication: INSOMNIA
     Dosage: 20MG PER DAY
     Route: 048
     Dates: start: 20080204
  5. CEROCRAL [Concomitant]
     Dosage: 60MG PER DAY
     Route: 048
  6. ALPRAZOLAM [Concomitant]
     Indication: PSYCHOSOMATIC DISEASE
     Dosage: .4MG PER DAY
     Route: 048
  7. LENDORMIN [Concomitant]
     Indication: INSOMNIA
     Dosage: .25MG PER DAY
     Route: 048
  8. LOXONIN [Concomitant]
     Indication: PAIN
     Dosage: 180MG PER DAY
     Route: 048
     Dates: start: 20080205, end: 20080206

REACTIONS (8)
  - ANOREXIA [None]
  - BLOOD CREATININE INCREASED [None]
  - BLOOD PRESSURE DECREASED [None]
  - BLOOD UREA INCREASED [None]
  - NAUSEA [None]
  - RENAL FAILURE ACUTE [None]
  - RESTLESSNESS [None]
  - VOMITING [None]
